FAERS Safety Report 10384759 (Version 1)
Quarter: 2014Q3

REPORT INFORMATION
  Report Type: Spontaneous
  Country: US (occurrence: None)
  Receive Date: 20140812
  Receipt Date: 20140812
  Transmission Date: 20150326
  Serious: Yes (Death, Other)
  Sender: FDA-Public Use
  Company Number: 2014AP003849

PATIENT
  Age: 61 Year
  Sex: Male

DRUGS (7)
  1. PAXIL [Suspect]
     Active Substance: PAROXETINE HYDROCHLORIDE
     Indication: ANXIETY
     Dates: start: 20110111
  2. ATENOLOL. [Concomitant]
     Active Substance: ATENOLOL
  3. DIGOXIN. [Concomitant]
     Active Substance: DIGOXIN
  4. XANAX [Concomitant]
     Active Substance: ALPRAZOLAM
  5. LISINOPRIL. [Concomitant]
     Active Substance: LISINOPRIL
  6. ZOCOR [Concomitant]
     Active Substance: SIMVASTATIN
  7. WARFARIN /00014802/ (WARFARIN SODIUM) [Concomitant]

REACTIONS (19)
  - Apnoea [None]
  - Condition aggravated [None]
  - Ventricular extrasystoles [None]
  - Left ventricular hypertrophy [None]
  - Cardiac arrest [None]
  - Electrocardiogram QRS complex prolonged [None]
  - Electrocardiogram ST-T segment abnormal [None]
  - Unresponsive to stimuli [None]
  - Pupil fixed [None]
  - Sudden death [None]
  - Cardiac valve disease [None]
  - Emotional distress [None]
  - Cardiac disorder [None]
  - Nervousness [None]
  - Electrocardiogram QT prolonged [None]
  - Atrial fibrillation [None]
  - Pulse absent [None]
  - Cyanosis [None]
  - Peripheral coldness [None]

NARRATIVE: CASE EVENT DATE: 20130214
